FAERS Safety Report 23960843 (Version 1)
Quarter: 2024Q2

REPORT INFORMATION
  Report Type: Spontaneous
  Country: US (occurrence: US)
  Receive Date: 20240611
  Receipt Date: 20240611
  Transmission Date: 20240716
  Serious: No
  Sender: FDA-Public Use
  Company Number: US-INCYTE CORPORATION-2024IN005841

PATIENT

DRUGS (1)
  1. JAKAFI [Suspect]
     Active Substance: RUXOLITINIB
     Indication: Polycythaemia vera
     Dosage: 5 MILLIGRAM, TAKE 2 TABLETS BY MOUTH IN THE MORNING AND TABLET IN THE EVENING
     Route: 048
     Dates: start: 202101

REACTIONS (1)
  - Pain [Not Recovered/Not Resolved]
